FAERS Safety Report 9357506 (Version 1)
Quarter: 2013Q2

REPORT INFORMATION
  Report Type: Report from Study
  Country: DE (occurrence: DE)
  Receive Date: 20130620
  Receipt Date: 20130620
  Transmission Date: 20140414
  Serious: Yes (Hospitalization)
  Sender: FDA-Public Use
  Company Number: DE-GENZYME-CLOF-1002653

PATIENT
  Age: 72 Year
  Sex: Female
  Weight: 50 kg

DRUGS (3)
  1. EVOLTRA [Suspect]
     Indication: ACUTE MYELOID LEUKAEMIA
     Dosage: 46 MG, QD
     Route: 042
     Dates: start: 20130418, end: 20130422
  2. CYTARABINE [Suspect]
     Indication: ACUTE MYELOID LEUKAEMIA
     Dosage: 1540 MG, QD (DAY 1-5)
     Route: 042
     Dates: start: 20130418, end: 20130422
  3. TAZOBACTAM [Concomitant]
     Indication: PROPHYLAXIS
     Dosage: 13.5 MG, UNK
     Route: 065
     Dates: start: 20130521, end: 20130527

REACTIONS (2)
  - Subclavian vein thrombosis [Recovered/Resolved]
  - Pneumothorax traumatic [Recovered/Resolved]
